FAERS Safety Report 16411587 (Version 3)
Quarter: 2020Q3

REPORT INFORMATION
  Report Type: Report from Study
  Country: FR (occurrence: FR)
  Receive Date: 20190610
  Receipt Date: 20200803
  Transmission Date: 20201102
  Serious: Yes (Other)
  Sender: FDA-Public Use
  Company Number: FR-JNJFOC-20190608248

PATIENT
  Age: 59 Year
  Sex: Female

DRUGS (3)
  1. GOLIMUMAB [Suspect]
     Active Substance: GOLIMUMAB
     Indication: POLYARTHRITIS
     Route: 058
     Dates: start: 20181001
  2. CORTANCYL [Concomitant]
     Active Substance: PREDNISONE
     Indication: POLYARTHRITIS
     Route: 065
     Dates: start: 20161002
  3. LEFLUNOMIDE. [Concomitant]
     Active Substance: LEFLUNOMIDE
     Indication: POLYARTHRITIS
     Route: 048
     Dates: start: 201601

REACTIONS (2)
  - Pyelonephritis [Recovered/Resolved]
  - Inflammation [Unknown]

NARRATIVE: CASE EVENT DATE: 201902
